FAERS Safety Report 6766362-5 (Version None)
Quarter: 2010Q2

REPORT INFORMATION
  Report Type: 
  Country: None (occurrence: None)
  Receive Date: 20100611
  Receipt Date: 20100601
  Transmission Date: 20101027
  Serious: Yes (Hospitalization)
  Sender: FDA-Public Use
  Company Number: PHHY2009JP28929

PATIENT
  Age: 79 Year
  Sex: Male
  Weight: 77 kg

DRUGS (6)
  1. GLEEVEC [Suspect]
     Indication: CHRONIC MYELOID LEUKAEMIA
     Dosage: 200 MG/DAY
     Route: 048
     Dates: start: 20020101, end: 20081202
  2. GLEEVEC [Suspect]
     Dosage: 200 MG/DAY
     Route: 048
     Dates: start: 20080101
  3. AMLODIN [Concomitant]
     Indication: HYPERTENSION
     Dosage: 5 MG, UNK
     Route: 048
  4. CASODEX [Concomitant]
     Indication: PROSTATE CANCER
     Dosage: 80 MG
     Route: 048
  5. CANDESARTAN CILEXETIL [Concomitant]
     Indication: HYPERTENSION
     Dosage: 4 MG
     Route: 048
  6. HARNAL [Concomitant]
     Indication: BENIGN PROSTATIC HYPERPLASIA
     Dosage: 0.2MG
     Route: 048

REACTIONS (8)
  - IMPAIRED HEALING [None]
  - NEOPLASM MALIGNANT [None]
  - NEPHROURETERECTOMY [None]
  - OPEN WOUND [None]
  - POSTOPERATIVE WOUND INFECTION [None]
  - RENAL CELL CARCINOMA [None]
  - URETERECTOMY [None]
  - WOUND SECRETION [None]
